FAERS Safety Report 6805462-8 (Version None)
Quarter: 2010Q2

REPORT INFORMATION
  Report Type: 
  Country: None (occurrence: None)
  Receive Date: 20100628
  Receipt Date: 20080204
  Transmission Date: 20101027
  Serious: No
  Sender: FDA-Public Use
  Company Number: US-PFIZER INC-2007105585

PATIENT
  Sex: Female
  Weight: 52.3 kg

DRUGS (7)
  1. GEODON [Suspect]
     Indication: MENTAL DISORDER
     Dates: start: 20071201
  2. PAXIL [Concomitant]
  3. AMBIEN [Concomitant]
  4. CRESTOR [Concomitant]
  5. MIDODRINE HYDROCHLORIDE [Concomitant]
  6. METHYLPHENIDATE [Concomitant]
  7. VALIUM [Concomitant]

REACTIONS (3)
  - NIPPLE DISORDER [None]
  - NIPPLE PAIN [None]
  - THIRST [None]
